FAERS Safety Report 10496299 (Version 2)
Quarter: 2014Q4

REPORT INFORMATION
  Report Type: Spontaneous
  Country: SG (occurrence: SG)
  Receive Date: 20141003
  Receipt Date: 20141014
  Transmission Date: 20150528
  Serious: Yes (Hospitalization)
  Sender: FDA-Public Use
  Company Number: SG-ABBVIE-14P-141-1291560-00

PATIENT
  Age: 32 Year
  Sex: Female

DRUGS (4)
  1. CETRORELIX [Suspect]
     Active Substance: CETRORELIX
     Indication: HORMONE THERAPY
     Dosage: FROM DAY 7 OF OVARIAN STIM UNTIL TRIGGER DAY
     Route: 065
  2. FSH [Suspect]
     Active Substance: FOLLITROPIN
     Indication: OVULATION INDUCTION
     Route: 065
  3. LEUPRORELIN [Suspect]
     Active Substance: LEUPROLIDE ACETATE
     Indication: OVULATION INDUCTION
     Route: 058
  4. FSH [Suspect]
     Active Substance: FOLLITROPIN
     Dosage: GRADUALLY STEPPED UP OVER 12 DAYS
     Route: 065

REACTIONS (5)
  - Haemoglobin decreased [None]
  - Twin pregnancy [None]
  - Haematocrit decreased [None]
  - Premature delivery [None]
  - Ovarian hyperstimulation syndrome [Unknown]
